FAERS Safety Report 24401071 (Version 1)
Quarter: 2024Q4

REPORT INFORMATION
  Report Type: Spontaneous
  Country: PL (occurrence: PL)
  Receive Date: 20241006
  Receipt Date: 20241006
  Transmission Date: 20250115
  Serious: Yes (Life-Threatening, Hospitalization, Other)
  Sender: JOHNSON AND JOHNSON
  Company Number: None

PATIENT
  Age: 67 Year
  Sex: Female
  Weight: 85 kg

DRUGS (1)
  1. XARELTO [Suspect]
     Active Substance: RIVAROXABAN
     Indication: Respiratory failure
     Dosage: 20 MG, QD
     Route: 048
     Dates: end: 20200722

REACTIONS (5)
  - Oxygen saturation [Recovering/Resolving]
  - Haemoptysis [Recovering/Resolving]
  - Respiratory failure [Recovering/Resolving]
  - Increased bronchial secretion [Recovering/Resolving]
  - Dyspnoea at rest [Recovering/Resolving]

NARRATIVE: CASE EVENT DATE: 20200717
